FAERS Safety Report 9694665 (Version 3)
Quarter: 2013Q4

REPORT INFORMATION
  Report Type: Report from Study
  Country: CA (occurrence: CA)
  Receive Date: 20131119
  Receipt Date: 20131216
  Transmission Date: 20140711
  Serious: Yes (Hospitalization)
  Sender: FDA-Public Use
  Company Number: CA-BIOGENIDEC-2013BI103025

PATIENT
  Age: 46 Year
  Sex: Male

DRUGS (5)
  1. TYSABRI [Suspect]
     Indication: RELAPSING-REMITTING MULTIPLE SCLEROSIS
     Route: 042
     Dates: start: 20120720, end: 20131018
  2. TYSABRI [Suspect]
     Indication: RELAPSING-REMITTING MULTIPLE SCLEROSIS
  3. ZOLOFT [Concomitant]
     Dates: start: 20130315
  4. SIMVASTATIN [Concomitant]
     Indication: MULTIPLE SCLEROSIS
     Dates: start: 20130125, end: 20131011
  5. MYRBETRIQ [Concomitant]
     Indication: MICTURITION URGENCY
     Dates: start: 20130722

REACTIONS (5)
  - Infusion related reaction [Recovered/Resolved with Sequelae]
  - Neck pain [Recovered/Resolved]
  - Multiple sclerosis relapse [Unknown]
  - Vomiting [Recovered/Resolved]
  - Pyrexia [Recovered/Resolved]
